FAERS Safety Report 4279254-0 (Version None)
Quarter: 2004Q1

REPORT INFORMATION
  Report Type: 
  Country: None (occurrence: None)
  Receive Date: 20040126
  Receipt Date: 20040126
  Transmission Date: 20041129
  Serious: Yes (Other)
  Sender: FDA-Public Use
  Company Number: None

PATIENT
  Age: 76 Year
  Sex: Male
  Weight: 71.7 kg

DRUGS (21)
  1. OXYBUTYNIN [Suspect]
  2. BRIMONIDINE TARTRATE [Concomitant]
  3. CLOPIDOGREL BISULFATE [Concomitant]
  4. NAPROXEN [Concomitant]
  5. VITAMIN E [Concomitant]
  6. PSYLLIUM SF [Concomitant]
  7. PAROXETINE TAB [Concomitant]
  8. ACETAMINOPHEN TAB [Concomitant]
  9. THIORIDAZINE TAB [Concomitant]
  10. RABEPRAZOLE TAB [Concomitant]
  11. LATANOPROST [Concomitant]
  12. BRIMONIDINE [Concomitant]
  13. ASPIRIN [Concomitant]
  14. HYDROCHLOROTHIAZIDE CAP [Concomitant]
  15. GLYBURIDE TAB [Concomitant]
  16. FERROUS SULFATE TAB [Concomitant]
  17. HYDROXYZINE PAMOATE CAP [Concomitant]
  18. NIFEDIPINE [Concomitant]
  19. LORAZEPAM [Concomitant]
  20. INFLUENZA VIRUS VACCINE INJ [Concomitant]
  21. TUBERCULIN PPD INJ [Concomitant]

REACTIONS (1)
  - CONFUSIONAL STATE [None]
